FAERS Safety Report 17974122 (Version 1)
Quarter: 2020Q3

REPORT INFORMATION
  Report Type: Spontaneous
  Country: US (occurrence: US)
  Receive Date: 20200701
  Receipt Date: 20200701
  Transmission Date: 20201103
  Serious: No
  Sender: FDA-Public Use
  Company Number: None

PATIENT
  Age: 76 Year
  Sex: Male
  Weight: 67.13 kg

DRUGS (1)
  1. TRINTELLIX [Suspect]
     Active Substance: VORTIOXETINE HYDROBROMIDE
     Indication: DEPRESSION
     Dosage: ?          QUANTITY:1;?
     Route: 048
     Dates: start: 20200220, end: 20200618

REACTIONS (3)
  - Arthropod bite [None]
  - Haemorrhagic diathesis [None]
  - Drug ineffective [None]

NARRATIVE: CASE EVENT DATE: 20200601
